FAERS Safety Report 22300378 (Version 1)
Quarter: 2023Q2

REPORT INFORMATION
  Report Type: Spontaneous
  Country: US (occurrence: US)
  Receive Date: 20230509
  Receipt Date: 20230509
  Transmission Date: 20230721
  Serious: No
  Sender: FDA-Public Use
  Company Number: US-002147023-NVSC2023US104482

PATIENT
  Sex: Male

DRUGS (1)
  1. DABRAFENIB\TRAMETINIB [Suspect]
     Active Substance: DABRAFENIB\TRAMETINIB
     Indication: Metastatic malignant melanoma
     Dosage: 150 MG, BID
     Route: 048

REACTIONS (1)
  - Pyrexia [Unknown]
